FAERS Safety Report 5918424-X (Version None)
Quarter: 2008Q4

REPORT INFORMATION
  Report Type: 
  Country: None (occurrence: None)
  Receive Date: 20081014
  Receipt Date: 20081014
  Transmission Date: 20090506
  Serious: Yes (Other)
  Sender: FDA-Public Use
  Company Number: None

PATIENT
  Sex: Female

DRUGS (1)
  1. ISOFACE (ISOTRETINOIN, PROCAPS [Suspect]
     Dosage: 10 MG

REACTIONS (3)
  - DRUG EXPOSURE DURING PREGNANCY [None]
  - SELF-MEDICATION [None]
  - UNINTENDED PREGNANCY [None]
